FAERS Safety Report 10406516 (Version 3)
Quarter: 2015Q1

REPORT INFORMATION
  Report Type: Spontaneous
  Country: IT (occurrence: IT)
  Receive Date: 20140825
  Receipt Date: 20150130
  Transmission Date: 20150720
  Serious: Yes (Hospitalization)
  Sender: FDA-Public Use
  Company Number: PHHY2014IT102204

PATIENT
  Age: 72 Year
  Sex: Female

DRUGS (3)
  1. SOLDESAM [Concomitant]
     Active Substance: DEXAMETHASONE
     Indication: PREMEDICATION
     Dosage: 4 MG/ML, UNK
     Route: 042
     Dates: start: 20140812, end: 20140812
  2. CARBOPLATIN. [Suspect]
     Active Substance: CARBOPLATIN
     Indication: OVARIAN CANCER METASTATIC
     Dosage: 400 MG, UNK
     Route: 042
     Dates: start: 20140812, end: 20140812
  3. ALOXI [Concomitant]
     Active Substance: PALONOSETRON HYDROCHLORIDE
     Indication: PREMEDICATION
     Dosage: 250 UG, UNK
     Route: 042
     Dates: start: 20140812, end: 20140812

REACTIONS (6)
  - Throat irritation [Recovered/Resolved]
  - Urticaria [Recovered/Resolved]
  - Hypoacusis [Recovered/Resolved]
  - Hypertensive crisis [Recovered/Resolved]
  - Erythema [Recovered/Resolved]
  - Oedema peripheral [Recovered/Resolved]

NARRATIVE: CASE EVENT DATE: 20140812
